FAERS Safety Report 25722741 (Version 2)
Quarter: 2025Q3

REPORT INFORMATION
  Report Type: Spontaneous
  Country: EU (occurrence: EU)
  Receive Date: 20250825
  Receipt Date: 20250905
  Transmission Date: 20251021
  Serious: Yes (Disabling, Other)
  Sender: JOHNSON AND JOHNSON
  Company Number: None

PATIENT
  Sex: Male

DRUGS (3)
  1. PALIPERIDONE PALMITATE [Suspect]
     Active Substance: PALIPERIDONE PALMITATE
     Indication: Product used for unknown indication
     Route: 030
     Dates: start: 20250203
  2. PALIPERIDONE PALMITATE [Suspect]
     Active Substance: PALIPERIDONE PALMITATE
  3. PALIPERIDONE PALMITATE [Suspect]
     Active Substance: PALIPERIDONE PALMITATE

REACTIONS (42)
  - Retinal degeneration [Not Recovered/Not Resolved]
  - Blindness [Not Recovered/Not Resolved]
  - Diabetic metabolic decompensation [Unknown]
  - Erectile dysfunction [Unknown]
  - Seizure [Unknown]
  - Bradykinesia [Not Recovered/Not Resolved]
  - Ocular hyperaemia [Unknown]
  - Visual impairment [Not Recovered/Not Resolved]
  - Nasal congestion [Not Recovered/Not Resolved]
  - Flatulence [Unknown]
  - Pain in extremity [Unknown]
  - Arthralgia [Recovering/Resolving]
  - Mobility decreased [Unknown]
  - Hyperhidrosis [Unknown]
  - Palpitations [Unknown]
  - Weight increased [Not Recovered/Not Resolved]
  - Arthralgia [Unknown]
  - Arthralgia [Unknown]
  - Insomnia [Unknown]
  - Fatigue [Unknown]
  - Insomnia [Recovered/Resolved]
  - Fatigue [Not Recovered/Not Resolved]
  - Hypersomnia [Not Recovered/Not Resolved]
  - Hiccups [Unknown]
  - Puncture site pain [Unknown]
  - Feeling hot [Unknown]
  - Apathy [Unknown]
  - Disturbance in attention [Unknown]
  - Yawning [Unknown]
  - Tachycardia [Unknown]
  - Constipation [Unknown]
  - Increased appetite [Unknown]
  - Abdominal pain [Not Recovered/Not Resolved]
  - Diarrhoea [Unknown]
  - Gastrointestinal sounds abnormal [Unknown]
  - Tendon pain [Not Recovered/Not Resolved]
  - Gait disturbance [Unknown]
  - Hand dermatitis [Unknown]
  - Lacrimation increased [Not Recovered/Not Resolved]
  - Eye irritation [Not Recovered/Not Resolved]
  - Back pain [Unknown]
  - Pain [Unknown]

NARRATIVE: CASE EVENT DATE: 20250101
